FAERS Safety Report 8012117-3 (Version None)
Quarter: 2011Q4

REPORT INFORMATION
  Report Type: 
  Country: None (occurrence: None)
  Receive Date: 20111228
  Receipt Date: 20111214
  Transmission Date: 20120403
  Serious: Yes (Hospitalization)
  Sender: FDA-Public Use
  Company Number: FR-MYLANLABS-2011S1026092

PATIENT
  Age: 6 Decade
  Sex: Male

DRUGS (5)
  1. PREDNISONE TAB [Suspect]
     Indication: IMMUNOSUPPRESSANT DRUG THERAPY
     Dosage: 10 MG/DAY (UNCLEAR; FIG. 2 IN ORIGINAL ARTICLE SAID 5 MG/D)
     Route: 065
     Dates: start: 20070101
  2. TACROLIMUS [Suspect]
     Dosage: 2 MG/DAY
     Route: 065
     Dates: start: 20070101
  3. TACROLIMUS [Suspect]
     Indication: IMMUNOSUPPRESSANT DRUG THERAPY
     Dosage: 7 MG/DAY
     Route: 065
     Dates: start: 20070101
  4. MYCOPHENOLIC ACID [Suspect]
     Indication: IMMUNOSUPPRESSANT DRUG THERAPY
     Route: 065
     Dates: start: 20070101
  5. ANTI-THYMOCYTE GLOBULIN NOS [Suspect]
     Indication: IMMUNOSUPPRESSANT DRUG THERAPY
     Route: 065
     Dates: start: 20070101

REACTIONS (2)
  - IMMUNE RECONSTITUTION SYNDROME [None]
  - MENINGITIS CRYPTOCOCCAL [None]
